FAERS Safety Report 4561849-8 (Version None)
Quarter: 2005Q1

REPORT INFORMATION
  Report Type: 
  Country: None (occurrence: None)
  Receive Date: 20050125
  Receipt Date: 20020430
  Transmission Date: 20050727
  Serious: Yes (Other)
  Sender: FDA-Public Use
  Company Number: 200400846

PATIENT
  Sex: Female

DRUGS (1)
  1. BOTOX [Suspect]
     Indication: DRUG USE FOR UNKNOWN INDICATION
     Dates: start: 20020301

REACTIONS (2)
  - ABORTION INDUCED [None]
  - DRUG EXPOSURE DURING PREGNANCY [None]
